FAERS Safety Report 8582602-4 (Version None)
Quarter: 2012Q3

REPORT INFORMATION
  Report Type: 
  Country: None (occurrence: None)
  Receive Date: 20120809
  Receipt Date: 20120801
  Transmission Date: 20120928
  Serious: Yes (Other)
  Sender: FDA-Public Use
  Company Number: FI-ROCHE-772559

PATIENT
  Sex: Female

DRUGS (6)
  1. LEFLUNOMIDE [Suspect]
     Indication: RHEUMATOID ARTHRITIS
     Dosage: DOSE REGIMEN REPORTED AS: UNREGULARLY
     Route: 065
  2. MABTHERA [Suspect]
     Indication: RHEUMATOID ARTHRITIS
     Dosage: DOSAGE REGIMEN GIVEN AS: IN COURSE OF 2 INFUSIONS OF 1000 MG. MOST RECENT DOSE WAS TAKEN IN FALL OF
     Route: 042
     Dates: start: 20060110, end: 20100901
  3. CORTISONE ACETATE [Concomitant]
     Indication: RHEUMATOID ARTHRITIS
  4. HYDROXYCHLOROQUINE SULFATE [Concomitant]
  5. PREDNISOLONE [Concomitant]
     Indication: RHEUMATOID ARTHRITIS
     Route: 048
  6. KALCIPOS-D [Concomitant]
     Route: 048

REACTIONS (4)
  - PREGNANCY [None]
  - CAESAREAN SECTION [None]
  - NO ADVERSE EVENT [None]
  - BLOOD PRESSURE INCREASED [None]
